FAERS Safety Report 9728127 (Version 1)
Quarter: 2013Q4

REPORT INFORMATION
  Report Type: Spontaneous
  Country: HU (occurrence: None)
  Receive Date: 20131127
  Receipt Date: 20131127
  Transmission Date: 20140711
  Serious: Yes (Other)
  Sender: FDA-Public Use
  Company Number: HU-20130002

PATIENT
  Age: 52 Year
  Sex: Male

DRUGS (2)
  1. LIPIODOL [Suspect]
     Indication: THERAPEUTIC EMBOLISATION
     Route: 013
  2. SPONGOSTAN (ABSORBABLE GELATIN SPONGE) (ABSORBABLE GELATIN SPONGE) [Concomitant]

REACTIONS (11)
  - Cerebral artery embolism [None]
  - Pulmonary oil microembolism [None]
  - Off label use [None]
  - Agitation [None]
  - Disorientation [None]
  - Unresponsive to stimuli [None]
  - Cyanosis [None]
  - General physical health deterioration [None]
  - Myoclonus [None]
  - Nystagmus [None]
  - Hepatic failure [None]
